FAERS Safety Report 7328680-1 (Version None)
Quarter: 2011Q1

REPORT INFORMATION
  Report Type: 
  Country: None (occurrence: None)
  Receive Date: 20110303
  Receipt Date: 20110223
  Transmission Date: 20110831
  Serious: Yes (Hospitalization)
  Sender: FDA-Public Use
  Company Number: DE-ROCHE-723798

PATIENT
  Sex: Male
  Weight: 83 kg

DRUGS (4)
  1. MCP [Concomitant]
     Indication: NAUSEA
     Dosage: DOSE 30 PER DAY, UNIT WAS NOT PROVIDED.
     Route: 048
     Dates: start: 20100308, end: 20100409
  2. CAPECITABINE [Suspect]
     Indication: COLORECTAL CANCER
     Dosage: 825 MG/M2 PER ORAL BID (TWICE A DAY), DAY 1 TO DAY 33 WITHOUT WEEKENDS+OPTIONAL BOOST.
     Route: 048
     Dates: start: 20100308
  3. CIPROBAY [Concomitant]
     Indication: ABSCESS
     Route: 048
     Dates: start: 20100329, end: 20100404
  4. ONDANSETRON [Concomitant]
     Indication: NAUSEA
     Route: 048
     Dates: start: 20100308, end: 20100430

REACTIONS (1)
  - ANASTOMOTIC LEAK [None]
